FAERS Safety Report 6386844-8 (Version None)
Quarter: 2009Q4

REPORT INFORMATION
  Report Type: 
  Country: None (occurrence: None)
  Receive Date: 20091002
  Receipt Date: 20090923
  Transmission Date: 20100525
  Serious: Yes (Other)
  Sender: FDA-Public Use
  Company Number: US-AMGEN-US366043

PATIENT
  Age: 14 Year
  Sex: Male

DRUGS (3)
  1. ENBREL [Suspect]
     Indication: ANKYLOSING SPONDYLITIS
     Route: 058
  2. INDOMETHACIN [Suspect]
     Route: 048
  3. ZANTAC [Concomitant]
     Route: 048

REACTIONS (2)
  - AVULSION FRACTURE [None]
  - TENDON RUPTURE [None]
